FAERS Safety Report 7619776-5 (Version None)
Quarter: 2011Q3

REPORT INFORMATION
  Report Type: 
  Country: None (occurrence: None)
  Receive Date: 20110719
  Receipt Date: 20110708
  Transmission Date: 20111222
  Serious: Yes (Other)
  Sender: FDA-Public Use
  Company Number: US-US-EMD SERONO, INC.-7065777

PATIENT
  Sex: Male
  Weight: 64 kg

DRUGS (7)
  1. REBIF [Suspect]
     Indication: MULTIPLE SCLEROSIS
     Route: 058
     Dates: start: 20110513, end: 20110531
  2. LASIX [Concomitant]
  3. COUMADIN [Concomitant]
  4. COREG CR [Concomitant]
  5. DURAGESIC-100 [Concomitant]
  6. BACLOFEN [Concomitant]
  7. REQUIP [Concomitant]

REACTIONS (6)
  - FALL [None]
  - LACERATION [None]
  - FAECAL INCONTINENCE [None]
  - ABNORMAL BEHAVIOUR [None]
  - SPEECH DISORDER [None]
  - HIP FRACTURE [None]
